FAERS Safety Report 25267867 (Version 2)
Quarter: 2025Q2

REPORT INFORMATION
  Report Type: Spontaneous
  Country: US (occurrence: US)
  Receive Date: 20250505
  Receipt Date: 20250506
  Transmission Date: 20250716
  Serious: Yes (Death)
  Sender: TEVA
  Company Number: US-TEVA-VS-3327105

PATIENT
  Age: 75 Year
  Sex: Male

DRUGS (1)
  1. WARFARIN [Suspect]
     Active Substance: WARFARIN
     Indication: Product used for unknown indication
     Route: 048

REACTIONS (5)
  - Brain neoplasm malignant [Fatal]
  - Pain in extremity [Recovered/Resolved]
  - Apallic syndrome [Fatal]
  - Peripheral swelling [Recovered/Resolved]
  - Gait inability [Unknown]
